FAERS Safety Report 23392314 (Version 1)
Quarter: 2024Q1

REPORT INFORMATION
  Report Type: Spontaneous
  Country: US (occurrence: US)
  Receive Date: 20240111
  Receipt Date: 20240111
  Transmission Date: 20240409
  Serious: Yes (Other)
  Sender: FDA-Public Use
  Company Number: US-REGENERON PHARMACEUTICALS, INC.-2023-073012

PATIENT
  Sex: Female

DRUGS (3)
  1. EYLEA [Suspect]
     Active Substance: AFLIBERCEPT
     Indication: Neovascular age-related macular degeneration
     Dosage: UNK (FORMULATION: GERRESHEIMER PREFILLED SYRINGE)
  2. EYLEA [Suspect]
     Active Substance: AFLIBERCEPT
     Dosage: UNK (FORMULATION: GERRESHEIMER PREFILLED SYRINGE)
     Dates: start: 20230413, end: 20230413
  3. EYLEA [Suspect]
     Active Substance: AFLIBERCEPT
     Dosage: UNK (FORMULATION: GERRESHEIMER PREFILLED SYRINGE)
     Dates: start: 20230525

REACTIONS (1)
  - Endophthalmitis [Recovering/Resolving]

NARRATIVE: CASE EVENT DATE: 20230429
